FAERS Safety Report 4408891-5 (Version None)
Quarter: 2004Q3

REPORT INFORMATION
  Report Type: 
  Country: None (occurrence: None)
  Receive Date: 20040727
  Receipt Date: 20040722
  Transmission Date: 20050211
  Serious: Yes (Hospitalization)
  Sender: FDA-Public Use
  Company Number: PHEH2004US07911

PATIENT
  Age: 61 Year
  Sex: Male

DRUGS (1)
  1. CLOZARIL [Suspect]
     Dosage: 250 MG/DAY
     Route: 048
     Dates: start: 20020129

REACTIONS (3)
  - COLON CANCER [None]
  - LEUKOPENIA [None]
  - PYREXIA [None]
